FAERS Safety Report 22115943 (Version 1)
Quarter: 2023Q1

REPORT INFORMATION
  Report Type: Spontaneous
  Country: US (occurrence: US)
  Receive Date: 20230320
  Receipt Date: 20230320
  Transmission Date: 20230417
  Serious: Yes (Other)
  Sender: FDA-Public Use
  Company Number: US-drreddys-SPO/USA/23/0162404

PATIENT
  Age: 21 Year
  Sex: Male

DRUGS (2)
  1. ZENATANE [Suspect]
     Active Substance: ISOTRETINOIN
     Indication: Product used for unknown indication
     Dosage: RMA ISSUE DATE: 18 OCTOBER 2022 12:22:13 PM, 16 NOVEMBER 2022 09:57:45 AM, 22 DECEMBER 2022 01:43:43
  2. ZENATANE [Suspect]
     Active Substance: ISOTRETINOIN
     Dosage: RMA ISSUE DATE: 16 NOVEMBER 2022 09:57:45 AM, 22 DECEMBER 2022 01:43:43 PM, 26 JANUARY 2023 05:43:21

REACTIONS (1)
  - Mood altered [Unknown]
